FAERS Safety Report 6844979-7 (Version None)
Quarter: 2010Q3

REPORT INFORMATION
  Report Type: 
  Country: None (occurrence: None)
  Receive Date: 20100715
  Receipt Date: 20100705
  Transmission Date: 20110219
  Serious: Yes (Death, Other)
  Sender: FDA-Public Use
  Company Number: BR-PFIZER INC-2010084612

PATIENT
  Age: 56 Year
  Sex: Male

DRUGS (2)
  1. VIAGRA [Suspect]
     Dosage: UNK
     Route: 048
     Dates: start: 20080101
  2. CAPTOPRIL [Concomitant]
     Dosage: UNK

REACTIONS (3)
  - CORONARY REVASCULARISATION [None]
  - DEATH [None]
  - INFARCTION [None]
